FAERS Safety Report 11766151 (Version 2)
Quarter: 2015Q4

REPORT INFORMATION
  Report Type: Report from Study
  Country: US (occurrence: US)
  Receive Date: 20151122
  Receipt Date: 20151221
  Transmission Date: 20160304
  Serious: Yes (Other)
  Sender: FDA-Public Use
  Company Number: US-ROCHE-1551949

PATIENT
  Sex: Male

DRUGS (7)
  1. AMLODIPINE AND BENAZEPRIL HYDROCHLORIDE [Concomitant]
     Active Substance: AMLODIPINE BESYLATE\BENAZEPRIL HYDROCHLORIDE
     Dosage: DOSE: 5/10 MG
     Route: 065
  2. LYRICA [Concomitant]
     Active Substance: PREGABALIN
     Route: 065
  3. ZELBORAF [Suspect]
     Active Substance: VEMURAFENIB
     Indication: THYROID CANCER
     Route: 048
  4. ZELBORAF [Suspect]
     Active Substance: VEMURAFENIB
     Indication: THYROID CANCER METASTATIC
     Route: 048
  5. ZOMETA [Concomitant]
     Active Substance: ZOLEDRONIC ACID
  6. SYNTHROID [Concomitant]
     Active Substance: LEVOTHYROXINE SODIUM
     Route: 065
  7. LOTREL [Concomitant]
     Active Substance: AMLODIPINE BESYLATE\BENAZEPRIL HYDROCHLORIDE
     Dosage: DOSE: 5/10 (UNIT NOT REPORTED)
     Route: 065

REACTIONS (14)
  - Metastases to bone [Unknown]
  - Fatigue [Unknown]
  - Drug ineffective [Unknown]
  - Cough [Unknown]
  - Off label use [Unknown]
  - Back pain [Unknown]
  - Arthralgia [Unknown]
  - Musculoskeletal stiffness [Unknown]
  - Squamous cell carcinoma [Unknown]
  - Hyperkeratosis [Unknown]
  - Pain [Unknown]
  - Skin papilloma [Unknown]
  - Neoplasm malignant [Unknown]
  - Osteolysis [Unknown]
